FAERS Safety Report 15734044 (Version 3)
Quarter: 2019Q2

REPORT INFORMATION
  Report Type: Spontaneous
  Country: US (occurrence: US)
  Receive Date: 20181218
  Receipt Date: 20190403
  Transmission Date: 20190711
  Serious: No
  Sender: FDA-Public Use
  Company Number: US-PFIZER INC-2018235168

PATIENT
  Age: 11 Year
  Sex: Male
  Weight: 45 kg

DRUGS (3)
  1. GENOTROPIN [Suspect]
     Active Substance: SOMATROPIN
     Dosage: 2.6 MG, DAILY
     Dates: start: 20150703
  2. GENOTROPIN [Suspect]
     Active Substance: SOMATROPIN
     Indication: BODY HEIGHT BELOW NORMAL
     Dosage: 2.6 MG, 1X/DAY
     Dates: start: 20150703
  3. GENOTROPIN [Suspect]
     Active Substance: SOMATROPIN
     Dosage: UNK

REACTIONS (4)
  - Product dose omission [Unknown]
  - Blood cholesterol increased [Unknown]
  - Device issue [Unknown]
  - Blood triglycerides increased [Unknown]

NARRATIVE: CASE EVENT DATE: 20180206
